FAERS Safety Report 7510367-3 (Version None)
Quarter: 2011Q2

REPORT INFORMATION
  Report Type: 
  Country: None (occurrence: None)
  Receive Date: 20110527
  Receipt Date: 20110516
  Transmission Date: 20111010
  Serious: Yes (Other)
  Sender: FDA-Public Use
  Company Number: US-WATSON-2011-06902

PATIENT
  Age: 37 Year
  Sex: Female

DRUGS (1)
  1. LIDOCAINE AND EPINEPHRINE [Suspect]
     Indication: LOCAL ANAESTHESIA
     Dosage: 2 ML 2% LIDOCAINE WITH 1:100 000 EPINEPHRINE
     Route: 058

REACTIONS (1)
  - SKIN NECROSIS [None]
